FAERS Safety Report 13622418 (Version 1)
Quarter: 2017Q2

REPORT INFORMATION
  Report Type: Report from Study
  Country: SB (occurrence: SB)
  Receive Date: 20170607
  Receipt Date: 20170607
  Transmission Date: 20170830
  Serious: Yes (Death, Other)
  Sender: FDA-Public Use
  Company Number: PHHY2017SB082919

PATIENT
  Sex: Female

DRUGS (1)
  1. GLIVEC [Suspect]
     Active Substance: IMATINIB MESYLATE
     Indication: CHRONIC MYELOID LEUKAEMIA
     Dosage: 400 MG, UNK
     Route: 065

REACTIONS (8)
  - Malaise [Unknown]
  - Death [Fatal]
  - Thrombocytopenia [Unknown]
  - Weight decreased [Unknown]
  - Anaemia [Unknown]
  - Bladder cancer [Unknown]
  - Haematuria [Unknown]
  - Second primary malignancy [Unknown]
